FAERS Safety Report 8615169-2 (Version None)
Quarter: 2012Q3

REPORT INFORMATION
  Report Type: 
  Country: None (occurrence: None)
  Receive Date: 20120823
  Receipt Date: 20120821
  Transmission Date: 20120928
  Serious: Yes (Hospitalization, Other)
  Sender: FDA-Public Use
  Company Number: FR-PFIZER INC-2012192801

PATIENT
  Age: 80 Year
  Sex: Male

DRUGS (6)
  1. ATORVASTATIN [Suspect]
     Indication: DYSLIPIDAEMIA
     Dosage: 80 MG, ONE DOSAGE FORM DAILY
     Route: 048
     Dates: start: 20120105, end: 20120117
  2. VALSARTAN [Concomitant]
     Dosage: 80 MG ONCE A DAY
     Route: 048
     Dates: start: 20090101
  3. PANTOPRAZOLE [Suspect]
     Indication: PROPHYLAXIS AGAINST GASTROINTESTINAL ULCER
     Dosage: 20 MG, ONE DOSAGE FORM DAILY
     Route: 048
     Dates: start: 20120103, end: 20120117
  4. PROZAC [Suspect]
     Indication: DEPRESSION
     Dosage: 20 MG, ONE DOSAGE FORM DAILY
     Route: 048
     Dates: start: 20120111, end: 20120117
  5. ASPIRIN [Concomitant]
     Dosage: 75 MG ONCE A DAY
     Route: 048
     Dates: start: 19970101
  6. LOVENOX [Suspect]
     Indication: PROPHYLAXIS
     Dosage: 4000 IU, DAILY
     Route: 058
     Dates: start: 20120102, end: 20120117

REACTIONS (3)
  - RASH MACULO-PAPULAR [None]
  - C-REACTIVE PROTEIN INCREASED [None]
  - LEUKOCYTOSIS [None]
